FAERS Safety Report 6826357-X (Version None)
Quarter: 2010Q3

REPORT INFORMATION
  Report Type: 
  Country: None (occurrence: None)
  Receive Date: 20100709
  Receipt Date: 20100702
  Transmission Date: 20110219
  Serious: Yes (Disabling)
  Sender: FDA-Public Use
  Company Number: GB-ASTRAZENECA-2010SE28682

PATIENT
  Age: 877 Month
  Sex: Male
  Weight: 80 kg

DRUGS (5)
  1. CASODEX [Suspect]
     Indication: PROSTATE CANCER
     Route: 048
  2. OMEPRAZOLE [Concomitant]
     Indication: GASTROOESOPHAGEAL REFLUX DISEASE
     Route: 048
  3. ASPIRIN [Concomitant]
     Indication: MYOCARDIAL ISCHAEMIA
     Route: 048
  4. EZETIMIBE [Concomitant]
     Route: 048
     Dates: start: 20090901
  5. BEZAFIBRATE [Concomitant]
     Route: 048
     Dates: start: 20090901

REACTIONS (1)
  - MYOPATHY [None]
